FAERS Safety Report 8832267 (Version 2)
Quarter: 2013Q2

REPORT INFORMATION
  Report Type: Report from Study
  Country: JP (occurrence: JP)
  Receive Date: 20121009
  Receipt Date: 20130417
  Transmission Date: 20140414
  Serious: Yes (Hospitalization)
  Sender: FDA-Public Use
  Company Number: JP-009507513-1210JPN002767

PATIENT
  Age: 65 Year
  Sex: Female
  Weight: 75 kg

DRUGS (14)
  1. PEGINTRON [Suspect]
     Indication: CHRONIC HEPATITIS C
     Dosage: 1.1 MICROGRAM PER KILOGRAM, QW
     Route: 058
     Dates: start: 20120731, end: 20120828
  2. PEGINTRON [Suspect]
     Dosage: 1.1 MICROGRAM PER KILOGRAM, QW
     Route: 058
     Dates: start: 20120911, end: 20120911
  3. PEGINTRON [Suspect]
     Dosage: 0.75 MICROGRAM PER KILOGRAM, QW
     Route: 058
     Dates: start: 20120918
  4. REBETOL [Suspect]
     Indication: CHRONIC HEPATITIS C
     Dosage: 400 MG, QD
     Route: 048
     Dates: start: 20120731, end: 20120803
  5. REBETOL [Suspect]
     Dosage: 200 MG, QD
     Route: 048
     Dates: start: 20120804, end: 20120820
  6. TELAVIC [Suspect]
     Indication: CHRONIC HEPATITIS C
     Dosage: 750 G, QD
     Route: 048
     Dates: start: 20120731, end: 20120812
  7. ARTIST [Concomitant]
     Indication: HYPERTENSION
     Dosage: 20 MG, QD, FORMULATION: POR
     Route: 048
  8. DIOVAN [Concomitant]
     Indication: HYPERTENSION
     Dosage: 80 MG, QD
     Route: 048
  9. NIFEDIPINE [Concomitant]
     Indication: HYPERTENSION
     Dosage: 20 MG, QD
     Route: 048
  10. PARIET [Concomitant]
     Indication: GASTRIC ULCER
     Dosage: 10 MG, QD, FORMULATION: POR
     Route: 048
     Dates: end: 20120924
  11. GASTROM [Concomitant]
     Indication: GASTRIC ULCER
     Dosage: 3 G, QD
     Route: 048
     Dates: end: 20121001
  12. ALLEGRA [Concomitant]
     Indication: PROPHYLAXIS
     Dosage: 120 MG, QD, FORMULATION: POR
     Route: 048
     Dates: end: 20120924
  13. RIZE [Concomitant]
     Indication: PSYCHOSOMATIC DISEASE
     Dosage: 5 MG, QD
     Route: 048
  14. ANOPROLIN [Concomitant]
     Indication: HYPERURICAEMIA
     Dosage: 300 MG, QD
     Route: 048
     Dates: end: 20120924

REACTIONS (1)
  - Anaemia [Recovered/Resolved]
